FAERS Safety Report 5459397-6 (Version None)
Quarter: 2007Q3

REPORT INFORMATION
  Report Type: 
  Country: None (occurrence: None)
  Receive Date: 20070919
  Receipt Date: 20070911
  Transmission Date: 20080115
  Serious: Yes (Hospitalization)
  Sender: FDA-Public Use
  Company Number: US-ELI_LILLY_AND_COMPANY-US200709001978

PATIENT
  Sex: Female

DRUGS (9)
  1. CALCIUM [Concomitant]
  2. VITAMINS [Concomitant]
  3. METOPROLOL SUCCINATE [Concomitant]
     Indication: HYPERTENSION
  4. NEXIUM [Concomitant]
     Indication: REFLUX OESOPHAGITIS
  5. TRIAMTERENE AND HYDROCHLOROTHIAZIDE [Concomitant]
     Indication: BLOOD PRESSURE
  6. SINGULAIR [Concomitant]
     Indication: HYPERSENSITIVITY
  7. ZETIA [Concomitant]
     Indication: BLOOD CHOLESTEROL INCREASED
  8. ADVAIR DISKUS 100/50 [Concomitant]
     Indication: CHRONIC OBSTRUCTIVE PULMONARY DISEASE
  9. FORTEO [Suspect]
     Dates: start: 20060301

REACTIONS (2)
  - BACK PAIN [None]
  - EXOSTOSIS [None]
